FAERS Safety Report 9170689 (Version 2)
Quarter: 2013Q2

REPORT INFORMATION
  Report Type: Spontaneous
  Country: US (occurrence: None)
  Receive Date: 20130311
  Receipt Date: 20130611
  Transmission Date: 20140414
  Serious: Yes (Other)
  Sender: FDA-Public Use
  Company Number: ADR-2013-00369

PATIENT
  Sex: Female

DRUGS (2)
  1. BACLOFEN INTRATHECAL [Suspect]
     Indication: PAIN
     Dosage: INTRETHECAL
  2. FENTANYL INTRATHECAL [Concomitant]

REACTIONS (10)
  - Nerve injury [None]
  - Implant site pain [None]
  - Paraesthesia [None]
  - Abdominal pain upper [None]
  - Fall [None]
  - Rib fracture [None]
  - Drug ineffective [None]
  - Open fracture [None]
  - Device deployment issue [None]
  - Muscle spasms [None]
